FAERS Safety Report 6424941-9 (Version None)
Quarter: 2009Q4

REPORT INFORMATION
  Report Type: 
  Country: None (occurrence: None)
  Receive Date: 20091029
  Receipt Date: 20091014
  Transmission Date: 20100525
  Serious: Yes (Hospitalization, Other)
  Sender: FDA-Public Use
  Company Number: CIP08000826

PATIENT
  Age: 62 Year
  Sex: Female

DRUGS (3)
  1. ACTONEL [Suspect]
     Indication: OSTEOPENIA
     Dosage: ORAL
     Route: 048
  2. TAMOXIFEN CITRATE [Suspect]
     Dosage: ORAL
     Route: 048
  3. CALCIUM PLUS D3 (CALCIUM, COLECALCIFEROL) [Concomitant]

REACTIONS (6)
  - BLOOD ALKALINE PHOSPHATASE DECREASED [None]
  - BLOOD CREATININE DECREASED [None]
  - FEMUR FRACTURE [None]
  - FRACTURE DELAYED UNION [None]
  - PATHOLOGICAL FRACTURE [None]
  - PULMONARY EMBOLISM [None]
